FAERS Safety Report 4873085-6 (Version None)
Quarter: 2005Q4

REPORT INFORMATION
  Report Type: 
  Country: None (occurrence: None)
  Receive Date: 20051201
  Receipt Date: 20050815
  Transmission Date: 20060501
  Serious: No
  Sender: FDA-Public Use
  Company Number: 2005PV001234

PATIENT
  Age: 66 Year
  Sex: Male
  Weight: 112.4921 kg

DRUGS (8)
  1. BYETTA [Suspect]
     Indication: DIABETES MELLITUS NON-INSULIN-DEPENDENT
     Dosage: 5 MCG; BID; SC
     Route: 058
     Dates: start: 20050715
  2. METFORMIN HCL [Concomitant]
  3. NIASPAN [Concomitant]
  4. LISINOPRIL [Concomitant]
  5. ACTOS [Concomitant]
  6. METOPROLOL [Concomitant]
  7. LIPITOR [Concomitant]
  8. ASPIRIN [Concomitant]

REACTIONS (7)
  - DECREASED APPETITE [None]
  - DIARRHOEA [None]
  - FATIGUE [None]
  - FLATULENCE [None]
  - NAUSEA [None]
  - WEIGHT DECREASED [None]
  - YAWNING [None]
